FAERS Safety Report 13485677 (Version 2)
Quarter: 2017Q2

REPORT INFORMATION
  Report Type: Spontaneous
  Country: US (occurrence: US)
  Receive Date: 20170426
  Receipt Date: 20170428
  Transmission Date: 20170830
  Serious: Yes (Other)
  Sender: FDA-Public Use
  Company Number: US-SUNOVION-2017SUN001759

PATIENT
  Age: 18 Year
  Sex: Female

DRUGS (3)
  1. CLONIDINE. [Suspect]
     Active Substance: CLONIDINE
     Dosage: UNK
  2. LEXAPRO [Suspect]
     Active Substance: ESCITALOPRAM OXALATE
     Dosage: UNK
  3. LATUDA [Suspect]
     Active Substance: LURASIDONE HYDROCHLORIDE
     Indication: BIPOLAR DISORDER
     Dosage: 20 MG, UNK
     Route: 048

REACTIONS (3)
  - Intentional self-injury [Unknown]
  - Depressed mood [Unknown]
  - Suicide attempt [Unknown]

NARRATIVE: CASE EVENT DATE: 2015
